FAERS Safety Report 5115676-3 (Version None)
Quarter: 2006Q3

REPORT INFORMATION
  Report Type: 
  Country: None (occurrence: None)
  Receive Date: 20060927
  Receipt Date: 20060619
  Transmission Date: 20061208
  Serious: Yes (Other)
  Sender: FDA-Public Use
  Company Number: JP-AVENTIS-200611887JP

PATIENT
  Age: 70 Year
  Sex: Female

DRUGS (5)
  1. AMARYL [Suspect]
     Indication: DIABETES MELLITUS
     Route: 048
     Dates: start: 20050401
  2. AMARYL [Suspect]
     Route: 048
     Dates: start: 20060608, end: 20060620
  3. CYANOCOBALAMIN [Concomitant]
     Indication: NEUROPATHY PERIPHERAL
     Route: 048
     Dates: start: 20021113
  4. P MAGEN [Concomitant]
     Indication: GASTRITIS
     Route: 048
     Dates: start: 19980501
  5. MARZULENE S [Concomitant]
     Indication: GASTRITIS
     Route: 048
     Dates: start: 19980501

REACTIONS (5)
  - BLOOD CREATINE PHOSPHOKINASE INCREASED [None]
  - FACE OEDEMA [None]
  - GLYCOSYLATED HAEMOGLOBIN INCREASED [None]
  - MALAISE [None]
  - OEDEMA [None]
